FAERS Safety Report 5772710-5 (Version None)
Quarter: 2008Q2

REPORT INFORMATION
  Report Type: 
  Country: None (occurrence: None)
  Receive Date: 20080613
  Receipt Date: 20080603
  Transmission Date: 20081010
  Serious: Yes (Hospitalization)
  Sender: FDA-Public Use
  Company Number: GB-PFIZER INC-2006058588

PATIENT
  Sex: Female
  Weight: 121 kg

DRUGS (2)
  1. SU-011,248 [Suspect]
     Indication: RENAL CELL CARCINOMA
     Route: 048
     Dates: start: 20060323, end: 20060418
  2. SU-011,248 [Suspect]
     Route: 048
     Dates: start: 20060504, end: 20060530

REACTIONS (4)
  - COAGULOPATHY [None]
  - GINGIVAL BLEEDING [None]
  - MOUTH HAEMORRHAGE [None]
  - TOOTH DISORDER [None]
